FAERS Safety Report 6473788-6 (Version None)
Quarter: 2009Q4

REPORT INFORMATION
  Report Type: 
  Country: None (occurrence: None)
  Receive Date: 20091204
  Receipt Date: 20091127
  Transmission Date: 20100525
  Serious: Yes (Death)
  Sender: FDA-Public Use
  Company Number: JP-ROCHE-664949

PATIENT
  Sex: Male

DRUGS (4)
  1. CAPECITABINE [Suspect]
     Indication: GASTROOESOPHAGEAL CANCER
     Dosage: DRUG NAME REPORTED: XELODA 300(CAPECITABINE) 2 WEEKS ADMINISTRATION FOLLOWED 1 WEEK REST.
     Route: 048
     Dates: start: 20090608, end: 20090916
  2. ERBITUX [Suspect]
     Indication: GASTROOESOPHAGEAL CANCER
     Route: 042
     Dates: start: 20090608, end: 20090101
  3. ERBITUX [Suspect]
     Route: 042
     Dates: start: 20090101, end: 20090915
  4. CISPLATIN [Concomitant]
     Route: 042
     Dates: start: 20090608, end: 20090608

REACTIONS (1)
  - ACUTE MYOCARDIAL INFARCTION [None]
